FAERS Safety Report 7998345-1 (Version None)
Quarter: 2011Q4

REPORT INFORMATION
  Report Type: 
  Country: None (occurrence: None)
  Receive Date: 20111221
  Receipt Date: 20110803
  Transmission Date: 20120403
  Serious: No
  Sender: FDA-Public Use
  Company Number: US-GLAXOSMITHKLINE-A0939532A

PATIENT
  Age: 57 Year
  Sex: Female

DRUGS (6)
  1. GLIMEPIRIDE [Concomitant]
  2. SYNTHROID [Concomitant]
  3. LOVAZA [Suspect]
     Indication: BLOOD TRIGLYCERIDES INCREASED
     Dosage: 1CAP TWICE PER DAY
     Route: 048
     Dates: start: 20110729, end: 20110802
  4. METFORMIN HCL [Concomitant]
  5. VITAMIN D [Concomitant]
  6. GARLIC SUPPLEMENT [Concomitant]

REACTIONS (3)
  - FUNCTIONAL GASTROINTESTINAL DISORDER [None]
  - FLATULENCE [None]
  - GASTROINTESTINAL DISORDER [None]
